FAERS Safety Report 18372380 (Version 1)
Quarter: 2020Q4

REPORT INFORMATION
  Report Type: Spontaneous
  Country: ES (occurrence: ES)
  Receive Date: 20201012
  Receipt Date: 20201012
  Transmission Date: 20210114
  Serious: Yes (Hospitalization)
  Sender: FDA-Public Use
  Company Number: ES-MYLANLABS-2020M1085134

PATIENT
  Age: 80 Year
  Sex: Female
  Weight: 80 kg

DRUGS (1)
  1. LINEZOLID. [Suspect]
     Active Substance: LINEZOLID
     Indication: DEVICE RELATED INFECTION
     Dosage: 600 MG/12 HORAS, LINEZOLID (1279A)
     Route: 048
     Dates: start: 20200815, end: 20200916

REACTIONS (4)
  - Anaemia [Recovering/Resolving]
  - Thrombocytopenia [Recovering/Resolving]
  - Diarrhoea [Recovering/Resolving]
  - Hyperlactacidaemia [Recovering/Resolving]

NARRATIVE: CASE EVENT DATE: 20200821
